FAERS Safety Report 4937108-8 (Version None)
Quarter: 2006Q1

REPORT INFORMATION
  Report Type: 
  Country: None (occurrence: None)
  Receive Date: 20060307
  Receipt Date: 20060307
  Transmission Date: 20060701
  Serious: Yes (Death, Hospitalization)
  Sender: FDA-Public Use
  Company Number: None

PATIENT
  Age: 89 Year
  Sex: Female
  Weight: 76 kg

DRUGS (10)
  1. WARFARIN SODIUM [Suspect]
     Indication: SUBCLAVIAN ARTERY THROMBOSIS
     Dosage: 4MG QD
     Dates: start: 20051206, end: 20051231
  2. ALBUTEROL [Concomitant]
  3. LOVENOX [Concomitant]
  4. DIGOXIN [Concomitant]
  5. TYLENOL (CAPLET) [Concomitant]
  6. ARICEPT [Concomitant]
  7. ASPIRIN [Concomitant]
  8. SYNTHROID [Concomitant]
  9. FLUCONAZOLE [Concomitant]
  10. LISINOPRIL [Concomitant]

REACTIONS (9)
  - ABDOMINAL PAIN [None]
  - ANORECTAL DISORDER [None]
  - DIARRHOEA [None]
  - GASTROINTESTINAL HAEMORRHAGE [None]
  - HYPOTENSION [None]
  - MYOCARDIAL INFARCTION [None]
  - RECTAL HAEMORRHAGE [None]
  - RENAL FAILURE ACUTE [None]
  - SKIN MACERATION [None]
